FAERS Safety Report 5916131-0 (Version None)
Quarter: 2008Q4

REPORT INFORMATION
  Report Type: 
  Country: None (occurrence: None)
  Receive Date: 20081013
  Receipt Date: 20080930
  Transmission Date: 20090506
  Serious: Yes (Other)
  Sender: FDA-Public Use
  Company Number: US-SANOFI-SYNTHELABO-A03200803840

PATIENT
  Sex: Male

DRUGS (1)
  1. PLAVIX [Suspect]
     Indication: DRUG USE FOR UNKNOWN INDICATION
     Dosage: UNK
     Route: 048
     Dates: start: 20070101

REACTIONS (6)
  - ASTHENIA [None]
  - FEELING ABNORMAL [None]
  - JAUNDICE [None]
  - LIVER DISORDER [None]
  - OCULAR ICTERUS [None]
  - VOMITING [None]
